FAERS Safety Report 10213542 (Version 1)
Quarter: 2014Q2

REPORT INFORMATION
  Report Type: Spontaneous
  Country: US (occurrence: None)
  Receive Date: 20140602
  Receipt Date: 20140602
  Transmission Date: 20141212
  Serious: Yes (Hospitalization, Disabling, Other)
  Sender: FDA-Public Use
  Company Number: None

PATIENT
  Age: 45 Year
  Sex: Female
  Weight: 40.82 kg

DRUGS (2)
  1. REGLAN [Suspect]
     Indication: NAUSEA
     Route: 048
     Dates: start: 20140126, end: 20140401
  2. REGLAN [Suspect]
     Route: 048
     Dates: start: 20140126, end: 20140401

REACTIONS (5)
  - Insomnia [None]
  - Akathisia [None]
  - Muscle contractions involuntary [None]
  - Pain in extremity [None]
  - Tremor [None]
